FAERS Safety Report 5337048-9 (Version None)
Quarter: 2007Q2

REPORT INFORMATION
  Report Type: 
  Country: None (occurrence: None)
  Receive Date: 20070524
  Receipt Date: 20070510
  Transmission Date: 20071010
  Serious: Yes (Hospitalization, Disabling)
  Sender: FDA-Public Use
  Company Number: CH-GUERBET-20070007

PATIENT
  Age: 68 Year
  Sex: Male

DRUGS (7)
  1. DOTAREM: / MEGLUMINE GADOTERATE [Suspect]
     Indication: NUCLEAR MAGNETIC RESONANCE IMAGING
     Dosage: SEE IMAGE
     Route: 042
     Dates: start: 20000805, end: 20000805
  2. DOTAREM: / MEGLUMINE GADOTERATE [Suspect]
     Indication: NUCLEAR MAGNETIC RESONANCE IMAGING
     Dosage: SEE IMAGE
     Route: 042
     Dates: start: 20011212, end: 20011212
  3. DOTAREM: / MEGLUMINE GADOTERATE [Suspect]
     Indication: NUCLEAR MAGNETIC RESONANCE IMAGING
     Dosage: SEE IMAGE
     Route: 042
     Dates: start: 20021010, end: 20021010
  4. OMNISCAN [Concomitant]
  5. PROHANCE [Concomitant]
  6. ULTRAVIST (PHARMACY BULK) [Concomitant]
  7. TELEBRIX/IOXITALAMATE MEGLUMINE [Concomitant]

REACTIONS (10)
  - ARTHRALGIA [None]
  - COMPLICATIONS OF TRANSPLANTED KIDNEY [None]
  - COUGH [None]
  - DISEASE PROGRESSION [None]
  - HAEMODIALYSIS [None]
  - LEG AMPUTATION [None]
  - NEPHROGENIC FIBROSING DERMOPATHY [None]
  - OSTEOMYELITIS CHRONIC [None]
  - RENAL FAILURE [None]
  - RENAL TRANSPLANT [None]
